FAERS Safety Report 7136134-0 (Version None)
Quarter: 2010Q4

REPORT INFORMATION
  Report Type: 
  Country: None (occurrence: None)
  Receive Date: 20101205
  Receipt Date: 20101124
  Transmission Date: 20110411
  Serious: Yes (Life-Threatening, Hospitalization)
  Sender: FDA-Public Use
  Company Number: DE-JNJFOC-20101200260

PATIENT
  Age: 64 Year
  Sex: Male

DRUGS (2)
  1. REMICADE [Suspect]
     Indication: CROHN'S DISEASE
     Route: 042
  2. AZATHIOPRIN [Concomitant]
     Dosage: START DATE REPORTED AS FUTURE DATE OF 28-DEC-2010

REACTIONS (9)
  - ASCITES [None]
  - FATIGUE [None]
  - HEPATIC ENZYME INCREASED [None]
  - HYPERURICAEMIA [None]
  - NAUSEA [None]
  - PAIN IN EXTREMITY [None]
  - PERITONEAL TUBERCULOSIS [None]
  - SKIN BURNING SENSATION [None]
  - VOMITING [None]
